FAERS Safety Report 7880320-9 (Version None)
Quarter: 2011Q4

REPORT INFORMATION
  Report Type: 
  Country: None (occurrence: None)
  Receive Date: 20111101
  Receipt Date: 20111021
  Transmission Date: 20120403
  Serious: Yes (Hospitalization)
  Sender: FDA-Public Use
  Company Number: US-BAYER-2011-065752

PATIENT
  Age: 22 Year
  Sex: Female
  Weight: 57 kg

DRUGS (11)
  1. HYDROCODONE BITARTRATE [Concomitant]
  2. DROSPIRENONE AND ETHINYL ESTRADIOL [Suspect]
     Indication: ORAL CONTRACEPTION
     Dosage: UNK
     Dates: start: 20081201, end: 20081201
  3. ASCORBIC ACID [Concomitant]
  4. POTASSIUM [Concomitant]
  5. CARISOPRODOL [Concomitant]
  6. YAZ [Suspect]
     Indication: ORAL CONTRACEPTION
     Dosage: UNK
     Dates: start: 20070501, end: 20090601
  7. IBUPROFEN [Concomitant]
  8. ZOLPIDEM [Concomitant]
  9. IBUPROFEN (ADVIL) [Concomitant]
  10. DIAZEPAM [Concomitant]
  11. NAPROXEN SODIUM AND PSEUDOEPHEDRINE HYDROCHLORIDE [Concomitant]

REACTIONS (8)
  - CARDIAC DISORDER [None]
  - WEIGHT INCREASED [None]
  - DYSPNOEA [None]
  - FEAR [None]
  - ALOPECIA [None]
  - PULMONARY EMBOLISM [None]
  - INJURY [None]
  - PAIN [None]
